APPROVED DRUG PRODUCT: PROMETHEGAN
Active Ingredient: PROMETHAZINE HYDROCHLORIDE
Strength: 50MG
Dosage Form/Route: SUPPOSITORY;RECTAL
Application: A087165 | Product #001
Applicant: COSETTE PHARMACEUTICALS INC
Approved: Aug 14, 1987 | RLD: No | RS: Yes | Type: RX